FAERS Safety Report 10362337 (Version 3)
Quarter: 2014Q3

REPORT INFORMATION
  Report Type: Report from Study
  Country: US (occurrence: US)
  Receive Date: 20140805
  Receipt Date: 20140929
  Transmission Date: 20150326
  Serious: Yes (Other)
  Sender: FDA-Public Use
  Company Number: US-SA-2014SA101381

PATIENT
  Age: 32 Year
  Sex: Male
  Weight: 99.2 kg

DRUGS (14)
  1. PROCHLORPERAZINE. [Concomitant]
     Active Substance: PROCHLORPERAZINE
  2. LOPERAMIDE [Concomitant]
     Active Substance: LOPERAMIDE
  3. AMLODIPINE [Concomitant]
     Active Substance: AMLODIPINE BESYLATE
     Route: 065
     Dates: start: 20140513
  4. AFLIBERCEPT [Suspect]
     Active Substance: AFLIBERCEPT
     Route: 041
     Dates: start: 20140429, end: 20140429
  5. OMEPRAZOLE. [Concomitant]
     Active Substance: OMEPRAZOLE
  6. 5 FU [Suspect]
     Active Substance: FLUOROURACIL
     Route: 041
  7. DOCUSATE [Concomitant]
     Active Substance: DOCUSATE
     Route: 065
     Dates: start: 20140429
  8. AFLIBERCEPT [Suspect]
     Active Substance: AFLIBERCEPT
     Route: 041
     Dates: start: 20140708, end: 20140708
  9. LEUCOVORIN [Suspect]
     Active Substance: LEUCOVORIN
     Route: 041
  10. SENNA ALEXANDRINA DRY EXTRACT/SENNA ALEXANDRINA FRUIT EXTRACT [Concomitant]
     Route: 065
     Dates: start: 20140429
  11. OXALIPLATIN. [Suspect]
     Active Substance: OXALIPLATIN
     Route: 041
  12. SUMATRIPTAN [Concomitant]
     Active Substance: SUMATRIPTAN
     Route: 065
     Dates: start: 20140527
  13. OXYCODONE [Concomitant]
     Active Substance: OXYCODONE
     Route: 065
     Dates: start: 20140610
  14. IBUPROFEN. [Concomitant]
     Active Substance: IBUPROFEN

REACTIONS (3)
  - Blood cholesterol increased [Unknown]
  - Hyperlipidaemia [Unknown]
  - Blood triglycerides increased [Unknown]
